FAERS Safety Report 5152902-9 (Version None)
Quarter: 2006Q4

REPORT INFORMATION
  Report Type: 
  Country: None (occurrence: None)
  Receive Date: 20061117
  Receipt Date: 20061102
  Transmission Date: 20070319
  Serious: Yes (Hospitalization)
  Sender: FDA-Public Use
  Company Number: CA-BAYER-200615588GDS

PATIENT
  Sex: Male

DRUGS (5)
  1. NEXAVAR [Suspect]
     Indication: RENAL CELL CARCINOMA STAGE UNSPECIFIED
     Dosage: TOTAL DAILY DOSE: 400 MG
     Route: 048
     Dates: start: 20060905
  2. MONITAN [Concomitant]
     Indication: UNEVALUABLE EVENT
     Route: 048
  3. ZANTAC [Concomitant]
     Indication: UNEVALUABLE EVENT
     Dosage: TOTAL DAILY DOSE: 300 MG
     Route: 048
  4. DILANTIN [Concomitant]
     Indication: UNEVALUABLE EVENT
     Route: 048
  5. ALTACE [Concomitant]
     Indication: UNEVALUABLE EVENT
     Route: 048

REACTIONS (7)
  - ANOREXIA [None]
  - ASTHENIA [None]
  - DIARRHOEA [None]
  - FATIGUE [None]
  - GAIT DISTURBANCE [None]
  - PYREXIA [None]
  - WEIGHT DECREASED [None]
